FAERS Safety Report 22013909 (Version 1)
Quarter: 2023Q1

REPORT INFORMATION
  Report Type: Spontaneous
  Country: SE (occurrence: SE)
  Receive Date: 20230221
  Receipt Date: 20230221
  Transmission Date: 20230417
  Serious: Yes (Other)
  Sender: FDA-Public Use
  Company Number: SE-MPA-2021-095504

PATIENT
  Age: 45 Year
  Sex: Female
  Weight: 72 kg

DRUGS (1)
  1. SERTRALINE HYDROCHLORIDE [Suspect]
     Active Substance: SERTRALINE HYDROCHLORIDE
     Indication: Dizziness
     Dosage: 50 MG 1/5 1 TIME/DAY THEN 1 1 TIMES A DAY
     Route: 048
     Dates: start: 20211111

REACTIONS (14)
  - Derealisation [Not Recovered/Not Resolved]
  - Dizziness [Not Recovered/Not Resolved]
  - Night sweats [Recovered/Resolved]
  - Diarrhoea [Recovering/Resolving]
  - Malaise [Unknown]
  - Fatigue [Not Recovered/Not Resolved]
  - Dry eye [Recovering/Resolving]
  - Anger [Recovered/Resolved]
  - Mania [Recovered/Resolved]
  - Tremor [Not Recovered/Not Resolved]
  - Disorientation [Recovered/Resolved with Sequelae]
  - Insomnia [Recovered/Resolved]
  - Headache [Not Recovered/Not Resolved]
  - Abnormal dreams [Recovered/Resolved]

NARRATIVE: CASE EVENT DATE: 20211112
